FAERS Safety Report 8142241-6 (Version None)
Quarter: 2012Q1

REPORT INFORMATION
  Report Type: 
  Country: None (occurrence: None)
  Receive Date: 20120216
  Receipt Date: 20120215
  Transmission Date: 20120608
  Serious: Yes (Other)
  Sender: FDA-Public Use
  Company Number: US-JNJFOC-20111202352

PATIENT
  Sex: Male
  Weight: 73.94 kg

DRUGS (8)
  1. CARDIZEM [Concomitant]
  2. LIALDA [Concomitant]
  3. DEXILANT [Concomitant]
  4. DIGOXIN [Concomitant]
  5. LIPITOR [Concomitant]
  6. SYNTHROID [Concomitant]
  7. REMICADE [Suspect]
     Indication: CROHN'S DISEASE
     Route: 042
  8. CARDURA [Concomitant]

REACTIONS (1)
  - B-CELL LYMPHOMA [None]
